FAERS Safety Report 7564825-6 (Version None)
Quarter: 2011Q2

REPORT INFORMATION
  Report Type: 
  Country: None (occurrence: None)
  Receive Date: 20110622
  Receipt Date: 20110317
  Transmission Date: 20111010
  Serious: Yes (Other)
  Sender: FDA-Public Use
  Company Number: US-MYLANLABS-2010S1023177

PATIENT
  Age: 53 Year
  Sex: Male
  Weight: 79.38 kg

DRUGS (7)
  1. CLOZAPINE [Suspect]
     Indication: SCHIZOPHRENIA
     Dates: start: 20101010, end: 20110107
  2. CLOZAPINE [Suspect]
     Dates: start: 20101010, end: 20110107
  3. COGENTIN [Concomitant]
  4. HALDOL [Concomitant]
     Route: 030
  5. DOCUSATE [Concomitant]
  6. LORAZEPAM [Concomitant]
  7. LOXEPIN [Concomitant]
     Route: 048

REACTIONS (2)
  - GRANULOCYTOPENIA [None]
  - LEUKOPENIA [None]
